FAERS Safety Report 6647115-5 (Version None)
Quarter: 2010Q1

REPORT INFORMATION
  Report Type: 
  Country: None (occurrence: None)
  Receive Date: 20100323
  Receipt Date: 20100311
  Transmission Date: 20100710
  Serious: Yes (Other)
  Sender: FDA-Public Use
  Company Number: PHEH2007US03193

PATIENT
  Sex: Female

DRUGS (17)
  1. ZOMETA [Suspect]
     Dosage: UNK
     Route: 042
     Dates: start: 20050101
  2. POTASSIUM CHLORIDE [Concomitant]
  3. PENICILLIN ^GRUNENTHAL^ [Concomitant]
  4. CLINDAMYCIN [Concomitant]
  5. SERTRALINE HCL [Concomitant]
  6. SIMVASTATIN [Concomitant]
  7. TUSSIONEX [Concomitant]
  8. DOXYCYCLINE [Concomitant]
  9. ECONAZOLE NITRATE [Concomitant]
  10. TRIAMCINOLONE ACETONIDE DIPOTASSIUM PHOSPHATE [Concomitant]
  11. HYDROCODONE [Concomitant]
  12. CHLORHEXIDINE GLUCONATE [Concomitant]
  13. FEMARA [Concomitant]
  14. LEVOTHYROXINE SODIUM [Concomitant]
  15. AMOXICILLIN [Concomitant]
  16. ZITHROMAX [Concomitant]
  17. LIPITOR [Concomitant]

REACTIONS (21)
  - ANXIETY [None]
  - DECREASED INTEREST [None]
  - DENTURE WEARER [None]
  - DEPRESSION [None]
  - DIVERTICULITIS [None]
  - DYSPNOEA [None]
  - GENERAL PHYSICAL HEALTH DETERIORATION [None]
  - HEPATIC STEATOSIS [None]
  - HYPERLIPIDAEMIA [None]
  - HYPOTHYROIDISM [None]
  - IMPAIRED HEALING [None]
  - LESION EXCISION [None]
  - MUSCLE TIGHTNESS [None]
  - OSTEOARTHRITIS [None]
  - OSTEONECROSIS [None]
  - PAIN [None]
  - PALPITATIONS [None]
  - PRIMARY SEQUESTRUM [None]
  - PULMONARY MASS [None]
  - TOOTH EXTRACTION [None]
  - UPPER RESPIRATORY TRACT INFECTION [None]
